FAERS Safety Report 18552024 (Version 1)
Quarter: 2020Q4

REPORT INFORMATION
  Report Type: Other
  Country: CA (occurrence: CA)
  Receive Date: 20201126
  Receipt Date: 20201126
  Transmission Date: 20210114
  Serious: Yes (Hospitalization, Other)
  Sender: FDA-Public Use
  Company Number: CA-CELLTRION INC.-2020CA032127

PATIENT

DRUGS (9)
  1. RITUXIMAB (UNKNOWN) [Suspect]
     Active Substance: RITUXIMAB
     Indication: ENCEPHALITIS AUTOIMMUNE
     Dosage: 1000.0 MILLIGRAM, 1 EVERY 6 MONTHS
     Route: 042
  2. RISPERIDONE. [Concomitant]
     Active Substance: RISPERIDONE
  3. TYLENOL [Concomitant]
     Active Substance: ACETAMINOPHEN
     Indication: PREMEDICATION
     Dosage: 650.0 MILLIGRAM
     Route: 048
  4. METHYLPREDNISOLONE SODIUM SUCCINATE. [Concomitant]
     Active Substance: METHYLPREDNISOLONE SODIUM SUCCINATE
     Indication: PREMEDICATION
     Dosage: 100.0 MILLIGRAM
     Route: 042
  5. RITUXIMAB (UNKNOWN) [Suspect]
     Active Substance: RITUXIMAB
     Dosage: UNK
     Route: 042
  6. CLONAZEPAM. [Concomitant]
     Active Substance: CLONAZEPAM
     Route: 065
  7. LAMIVUDINE. [Concomitant]
     Active Substance: LAMIVUDINE
  8. BENADRYL [Concomitant]
     Active Substance: DIPHENHYDRAMINE HYDROCHLORIDE
  9. RANITIDINE. [Concomitant]
     Active Substance: RANITIDINE
     Indication: PREMEDICATION
     Dosage: 50.0 MILLIGRAM
     Route: 042

REACTIONS (10)
  - Blood pressure fluctuation [Recovered/Resolved]
  - Nasal congestion [Recovered/Resolved]
  - Weight increased [Recovered/Resolved]
  - Malaise [Recovered/Resolved]
  - Vomiting [Recovered/Resolved]
  - Off label use [Recovered/Resolved]
  - Product use in unapproved indication [Recovered/Resolved]
  - Coeliac disease [Recovered/Resolved]
  - Systemic lupus erythematosus [Recovered/Resolved]
  - Anxiety [Recovered/Resolved]
